FAERS Safety Report 21075536 (Version 9)
Quarter: 2022Q4

REPORT INFORMATION
  Report Type: Report from Study
  Country: DE (occurrence: DE)
  Receive Date: 20220713
  Receipt Date: 20221215
  Transmission Date: 20230113
  Serious: Yes (Hospitalization)
  Sender: FDA-Public Use
  Company Number: DE-PFIZER INC-PV202200016436

PATIENT
  Age: 52 Year
  Sex: Male
  Weight: 108 kg

DRUGS (2)
  1. ABROCITINIB [Suspect]
     Active Substance: ABROCITINIB
     Indication: Dermatitis atopic
     Dosage: 100 MG, 1X/DAY
     Route: 048
     Dates: start: 20181129, end: 20220622
  2. AMLODIPINE BESYLATE\PERINDOPRIL ARGININE [Concomitant]
     Active Substance: AMLODIPINE BESYLATE\PERINDOPRIL ARGININE
     Indication: Hypertension
     Dosage: [PERINDOPRIL ARGININE 3.5 MG]/[AMLODIPINE BESILATE 2.5 MG], 1X/DAY
     Route: 048
     Dates: start: 20210402

REACTIONS (2)
  - Keratitis [Recovered/Resolved with Sequelae]
  - Corneal thinning [Recovered/Resolved with Sequelae]

NARRATIVE: CASE EVENT DATE: 20220428
